FAERS Safety Report 6583552-5 (Version None)
Quarter: 2010Q1

REPORT INFORMATION
  Report Type: 
  Country: None (occurrence: None)
  Receive Date: 20100216
  Receipt Date: 20100208
  Transmission Date: 20100710
  Serious: Yes (Hospitalization)
  Sender: FDA-Public Use
  Company Number: JP-ASTRAZENECA-2009SE23124

PATIENT
  Age: 15599 Day
  Sex: Male
  Weight: 71 kg

DRUGS (6)
  1. ECARD [Suspect]
     Indication: HYPERTENSION
     Route: 048
     Dates: start: 20091010
  2. CRESTOR [Suspect]
     Indication: HYPERCHOLESTEROLAEMIA
     Route: 048
     Dates: start: 20090928, end: 20091011
  3. CALONAL [Suspect]
     Indication: HEADACHE
     Route: 048
     Dates: start: 20091010
  4. CALBLOCK [Suspect]
     Dosage: EVERY DAY
     Route: 048
     Dates: start: 20091010
  5. ARTIST [Suspect]
     Dosage: EVERY DAY
     Route: 048
     Dates: start: 20091010
  6. CONIEL [Suspect]
     Route: 048

REACTIONS (4)
  - ALANINE AMINOTRANSFERASE INCREASED [None]
  - ASPARTATE AMINOTRANSFERASE INCREASED [None]
  - HEPATIC FUNCTION ABNORMAL [None]
  - LIVER FUNCTION TEST ABNORMAL [None]
